FAERS Safety Report 15467130 (Version 1)
Quarter: 2018Q4

REPORT INFORMATION
  Report Type: Spontaneous
  Country: GB (occurrence: GB)
  Receive Date: 20181005
  Receipt Date: 20181005
  Transmission Date: 20190204
  Serious: Yes (Other)
  Sender: FDA-Public Use
  Company Number: GB-BRISTOL-MYERS SQUIBB COMPANY-BMS-2018-089425

PATIENT
  Age: 85 Year
  Sex: Female
  Weight: 58 kg

DRUGS (7)
  1. ADCAL                              /00056901/ [Concomitant]
     Active Substance: CARBAZOCHROME
     Indication: PRODUCT USED FOR UNKNOWN INDICATION
     Dosage: 1 DF, 1DF= 2T, 1 DAY DRUG INTERVAL
     Route: 065
     Dates: start: 20151124
  2. BECLOMETASONE [Concomitant]
     Active Substance: BECLOMETHASONE DIPROPIONATE
     Indication: PRODUCT USED FOR UNKNOWN INDICATION
     Dosage: 1 DF, 1 DF=4T, PUFFS
     Route: 065
     Dates: start: 20170523
  3. ACETYLSALICYLIC ACID [Concomitant]
     Active Substance: ASPIRIN
     Indication: PRODUCT USED FOR UNKNOWN INDICATION
     Dosage: 1 DF, 1 DF=1T, 2 DAY DRUG INTERVAL
     Route: 065
     Dates: start: 20160822
  4. TRIAMCINOLONE ACETONIDE. [Suspect]
     Active Substance: TRIAMCINOLONE ACETONIDE
     Indication: PRODUCT USED FOR UNKNOWN INDICATION
     Dosage: 40 MG/ML, VIALS
     Route: 065
  5. HYLO-FORTE [Concomitant]
     Active Substance: HYALURONATE SODIUM
     Indication: PRODUCT USED FOR UNKNOWN INDICATION
     Route: 065
  6. LEVOTHYROXINE. [Concomitant]
     Active Substance: LEVOTHYROXINE
     Indication: PRODUCT USED FOR UNKNOWN INDICATION
     Dosage: 1 DF, 1 DF=1T , 1 DAY DRUG INTERVAL
     Route: 065
     Dates: start: 20180319
  7. AMLODIPINE [Concomitant]
     Active Substance: AMLODIPINE BESYLATE
     Indication: PRODUCT USED FOR UNKNOWN INDICATION
     Dosage: 1 DF, 1 DF= 1 T, 1 DAY DRUG INTERVAL
     Route: 065
     Dates: start: 20180612

REACTIONS (2)
  - Blindness unilateral [Not Recovered/Not Resolved]
  - Head discomfort [Recovering/Resolving]

NARRATIVE: CASE EVENT DATE: 20180910
